FAERS Safety Report 11711958 (Version 1)
Quarter: 2015Q4

REPORT INFORMATION
  Report Type: Spontaneous
  Country: US (occurrence: US)
  Receive Date: 20151104
  Receipt Date: 20151104
  Transmission Date: 20160304
  Serious: No
  Sender: FDA-Public Use
  Company Number: US-ELI_LILLY_AND_COMPANY-US201106005679

PATIENT
  Sex: Female

DRUGS (2)
  1. FORTEO [Suspect]
     Active Substance: TERIPARATIDE
     Dosage: 20 UG, QD
  2. FORTEO [Suspect]
     Active Substance: TERIPARATIDE
     Indication: OSTEOPOROSIS
     Dosage: 20 UG, QD
     Dates: start: 2010

REACTIONS (8)
  - Osteomyelitis [Recovering/Resolving]
  - Arthritis [Recovering/Resolving]
  - Arthropathy [Recovering/Resolving]
  - Mobility decreased [Recovered/Resolved]
  - Lower limb fracture [Recovering/Resolving]
  - Fracture [Unknown]
  - Osteitis [Recovering/Resolving]
  - Arthralgia [Recovering/Resolving]
